FAERS Safety Report 16812929 (Version 1)
Quarter: 2019Q3

REPORT INFORMATION
  Report Type: Other
  Country: US (occurrence: US)
  Receive Date: 20190916
  Receipt Date: 20190916
  Transmission Date: 20191005
  Serious: No
  Sender: FDA-Public Use
  Company Number: US-LEADIANT BIOSCIENCES INC-2018STPI000528

PATIENT
  Sex: Male

DRUGS (6)
  1. MATULANE [Suspect]
     Active Substance: PROCARBAZINE HYDROCHLORIDE
     Indication: CENTRAL NERVOUS SYSTEM NEOPLASM
     Dosage: 50 MG, 2 CAPS DAILY ON DAYS 8 TO 21 OF 4 WEEK CYCLE
     Route: 048
     Dates: start: 20171115
  2. OMEGA                              /00661201/ [Concomitant]
     Dosage: 3500 MG, UNK
  3. ELIQUIS [Concomitant]
     Active Substance: APIXABAN
     Dosage: 5 MG, UNK
  4. VINCRISTINE [Concomitant]
     Active Substance: VINCRISTINE
     Dosage: 1 MG, UNK
  5. GLEOSTINE [Concomitant]
     Active Substance: LOMUSTINE
     Dosage: 10 MG, UNK
  6. VITAMIN D                          /00107901/ [Concomitant]
     Active Substance: ERGOCALCIFEROL

REACTIONS (1)
  - Liver injury [Unknown]
